FAERS Safety Report 14895537 (Version 1)
Quarter: 2018Q2

REPORT INFORMATION
  Report Type: Report from Study
  Country: BR (occurrence: BR)
  Receive Date: 20180515
  Receipt Date: 20180515
  Transmission Date: 20180711
  Serious: Yes (Hospitalization, Other)
  Sender: FDA-Public Use
  Company Number: PHHY2017BR086173

PATIENT
  Sex: Male
  Weight: 65 kg

DRUGS (4)
  1. COSENTYX [Suspect]
     Active Substance: SECUKINUMAB
     Indication: PSORIASIS
     Dosage: 2 DF (150 MG), QMO
     Route: 058
     Dates: start: 20171116
  2. COSENTYX [Suspect]
     Active Substance: SECUKINUMAB
     Dosage: 300 MG (2 PENS OF 150 MG), QMO
     Route: 058
     Dates: start: 20180116
  3. COSENTYX [Suspect]
     Active Substance: SECUKINUMAB
     Indication: PSORIATIC ARTHROPATHY
     Dosage: 300 MG (2 PENS OF 150 MG), QMO
     Route: 058
     Dates: start: 20170219
  4. COSENTYX [Suspect]
     Active Substance: SECUKINUMAB
     Dosage: UNK
     Route: 065
     Dates: start: 20180404

REACTIONS (15)
  - Skin irritation [Unknown]
  - Malaise [Unknown]
  - Irritability [Not Recovered/Not Resolved]
  - Insomnia [Not Recovered/Not Resolved]
  - Inappropriate schedule of drug administration [Unknown]
  - Weight increased [Unknown]
  - Arthralgia [Recovered/Resolved]
  - Movement disorder [Unknown]
  - Pain [Recovering/Resolving]
  - Asthenia [Recovering/Resolving]
  - Mental disorder [Not Recovered/Not Resolved]
  - Bone pain [Not Recovered/Not Resolved]
  - Psoriasis [Recovering/Resolving]
  - Psoriatic arthropathy [Recovering/Resolving]
  - Skin injury [Not Recovered/Not Resolved]
